FAERS Safety Report 8388051-6 (Version None)
Quarter: 2012Q2

REPORT INFORMATION
  Report Type: 
  Country: None (occurrence: None)
  Receive Date: 20120525
  Receipt Date: 20120524
  Transmission Date: 20120825
  Serious: No
  Sender: FDA-Public Use
  Company Number: US-PFIZER INC-2012126755

PATIENT
  Age: 21 Year
  Sex: Male
  Weight: 89.796 kg

DRUGS (4)
  1. GEODON [Suspect]
     Indication: ANGER
  2. LITHIUM CARBONATE [Concomitant]
     Indication: ANGER
     Dosage: UNK
  3. GEODON [Suspect]
     Indication: AFFECTIVE DISORDER
     Dosage: 20 MG, 2X/DAY
     Dates: start: 20120427
  4. LITHIUM CARBONATE [Concomitant]
     Indication: AFFECTIVE DISORDER

REACTIONS (2)
  - DRUG INEFFECTIVE [None]
  - PARAESTHESIA [None]
